FAERS Safety Report 8347385-1 (Version None)
Quarter: 2012Q1

REPORT INFORMATION
  Report Type: 
  Country: None (occurrence: None)
  Receive Date: 20120315
  Receipt Date: 20110119
  Transmission Date: 20120608
  Serious: No
  Sender: FDA-Public Use
  Company Number: PHHY2010US89783

PATIENT
  Age: 52 Year
  Sex: Female

DRUGS (4)
  1. LIPITOR [Concomitant]
  2. ALIVEG (CIMETIDINE) [Concomitant]
  3. GILENYA [Suspect]
     Indication: MULTIPLE SCLEROSIS
     Dosage: 0.5 MG, QD, ORAL
     Route: 048
     Dates: start: 20101206
  4. CODEINE SULFATE [Concomitant]

REACTIONS (4)
  - BALANCE DISORDER [None]
  - NIGHT SWEATS [None]
  - MUSCULOSKELETAL STIFFNESS [None]
  - DIZZINESS [None]
